FAERS Safety Report 21097137 (Version 2)
Quarter: 2022Q3

REPORT INFORMATION
  Report Type: Spontaneous
  Country: US (occurrence: US)
  Receive Date: 20220719
  Receipt Date: 20220802
  Transmission Date: 20221026
  Serious: No
  Sender: FDA-Public Use
  Company Number: US-JNJFOC-20220702947

PATIENT
  Age: 42 Year
  Sex: Female
  Weight: 127.01 kg

DRUGS (5)
  1. TREMFYA [Suspect]
     Active Substance: GUSELKUMAB
     Indication: Psoriatic arthropathy
     Route: 065
  2. TREMFYA [Suspect]
     Active Substance: GUSELKUMAB
     Indication: Psoriasis
  3. TREMFYA [Suspect]
     Active Substance: GUSELKUMAB
  4. TOFACITINIB CITRATE [Suspect]
     Active Substance: TOFACITINIB CITRATE
     Indication: Psoriatic arthropathy
     Route: 048
  5. TOFACITINIB CITRATE [Suspect]
     Active Substance: TOFACITINIB CITRATE
     Indication: Psoriasis

REACTIONS (5)
  - Drug ineffective [Unknown]
  - Fatigue [Unknown]
  - Diarrhoea [Unknown]
  - Abdominal pain upper [Unknown]
  - Nasopharyngitis [Unknown]
